FAERS Safety Report 20346640 (Version 1)
Quarter: 2022Q1

REPORT INFORMATION
  Report Type: Spontaneous
  Country: US (occurrence: None)
  Receive Date: 20220118
  Receipt Date: 20220118
  Transmission Date: 20220423
  Serious: No
  Sender: FDA-Public Use
  Company Number: None

PATIENT
  Sex: Male
  Weight: 81.6 kg

DRUGS (1)
  1. CYTARABINE [Suspect]
     Active Substance: CYTARABINE
     Dates: end: 20211124

REACTIONS (4)
  - Febrile neutropenia [None]
  - Sinus congestion [None]
  - Toothache [None]
  - Rash [None]

NARRATIVE: CASE EVENT DATE: 20211130
